FAERS Safety Report 18736127 (Version 1)
Quarter: 2021Q1

REPORT INFORMATION
  Report Type: Spontaneous
  Country: BR (occurrence: BR)
  Receive Date: 20210113
  Receipt Date: 20210113
  Transmission Date: 20210419
  Serious: Yes (Other)
  Sender: FDA-Public Use
  Company Number: BR-LUPIN PHARMACEUTICALS INC.-2021-00089

PATIENT
  Age: 55 Year
  Sex: Male
  Weight: 75 kg

DRUGS (5)
  1. ATORVASTATIN [Concomitant]
     Active Substance: ATORVASTATIN
     Indication: SUPPORTIVE CARE
     Dosage: 10 MILLIGRAM, QD (ONCE AT NIGHT FOR FIFTEEN DAYS)
     Route: 048
  2. ASPIRINE [Concomitant]
     Active Substance: ASPIRIN
     Indication: SUPPORTIVE CARE
     Dosage: 3 DOSAGE FORM, TID
     Route: 048
  3. AZITHROMYCIN ANHYDROUS. [Suspect]
     Active Substance: AZITHROMYCIN ANHYDROUS
     Indication: COVID-19
     Dosage: 500 MILLIGRAM, QD
     Route: 048
  4. IVERMECTIN. [Suspect]
     Active Substance: IVERMECTIN
     Indication: COVID-19
     Dosage: 2.5 DOSAGE FORM (TWO AND A HALF TABLETS OF 6MG AS A SINGLE DOSE)
     Route: 048
  5. ASPIRINE [Concomitant]
     Active Substance: ASPIRIN
     Dosage: 1 DOSAGE FORM, QD
     Route: 048

REACTIONS (1)
  - Off label use [Unknown]
